FAERS Safety Report 9159873 (Version 1)
Quarter: 2013Q1

REPORT INFORMATION
  Report Type: Spontaneous
  Country: US (occurrence: US)
  Receive Date: 20130313
  Receipt Date: 20130313
  Transmission Date: 20140127
  Serious: Yes (Other)
  Sender: FDA-Public Use
  Company Number: US-SANOFI-AVENTIS-2013SA011034

PATIENT
  Age: 52 Year
  Sex: Female
  Weight: 86.18 kg

DRUGS (21)
  1. AUBAGIO [Suspect]
     Indication: MULTIPLE SCLEROSIS
     Route: 048
     Dates: start: 20130111
  2. BACLOFEN [Concomitant]
     Indication: MUSCLE SPASMS
     Dates: start: 20121116
  3. AMITRIPTYLIN [Concomitant]
     Indication: PAIN
     Dates: start: 20020406
  4. AMITRIPTYLIN [Concomitant]
     Indication: HEADACHE
     Dates: start: 20020406
  5. PROVIGIL [Concomitant]
     Indication: FATIGUE
  6. LEVOTHYROXINE [Concomitant]
     Indication: HYPOTHYROIDISM
  7. DETROL [Concomitant]
     Indication: BLADDER DISORDER
  8. LISINOPRIL [Concomitant]
     Indication: HYPERTENSION
  9. METFORMIN [Concomitant]
     Indication: INSULIN RESISTANCE
  10. TRAZODONE [Concomitant]
     Indication: SLEEP DISORDER
  11. SIMVASTATIN [Concomitant]
     Indication: BLOOD CHOLESTEROL INCREASED
  12. HERBALIFE PRODUCTS [Concomitant]
  13. ASPIRIN [Concomitant]
     Indication: PROPHYLAXIS
  14. COQ10 [Concomitant]
     Indication: ADVERSE DRUG REACTION
     Dates: start: 20090508
  15. OMEGA 3 [Concomitant]
     Indication: BLOOD CHOLESTEROL
  16. GARLIC [Concomitant]
     Indication: BLOOD CHOLESTEROL
  17. NIACIN [Concomitant]
     Indication: BLOOD CHOLESTEROL
  18. DAILY MULTIVITAMIN [Concomitant]
  19. ACETAMINOPHEN [Concomitant]
  20. NAPROXEN [Concomitant]
  21. IBUPROFEN [Concomitant]

REACTIONS (4)
  - Multiple sclerosis relapse [Not Recovered/Not Resolved]
  - Burning sensation [Not Recovered/Not Resolved]
  - Muscle spasms [Not Recovered/Not Resolved]
  - Paraesthesia [Not Recovered/Not Resolved]
